FAERS Safety Report 4662498-3 (Version None)
Quarter: 2005Q2

REPORT INFORMATION
  Report Type: 
  Country: None (occurrence: None)
  Receive Date: 20050512
  Receipt Date: 20050506
  Transmission Date: 20051028
  Serious: Yes (Hospitalization)
  Sender: FDA-Public Use
  Company Number: 200510213BNE

PATIENT
  Age: 38 Year
  Sex: Female

DRUGS (5)
  1. CANESTEN ONCE (CLOTRIMAZOLE) [Suspect]
     Dates: start: 20050316
  2. DOXYCYCLINE [Concomitant]
  3. METRONIDAZOLE [Concomitant]
  4. CEPHALEXIN [Concomitant]
  5. CO-CODAMOL [Concomitant]

REACTIONS (7)
  - CANDIDIASIS [None]
  - PAIN [None]
  - PRURITUS [None]
  - URETHRITIS [None]
  - URINARY RETENTION [None]
  - VAGINAL PAIN [None]
  - VAGINAL ULCERATION [None]
